FAERS Safety Report 24029979 (Version 1)
Quarter: 2024Q2

REPORT INFORMATION
  Report Type: Spontaneous
  Country: US (occurrence: None)
  Receive Date: 20240628
  Receipt Date: 20240628
  Transmission Date: 20240716
  Serious: No
  Sender: FDA-Public Use
  Company Number: None

PATIENT
  Age: 50 Year
  Sex: Female
  Weight: 80.55 kg

DRUGS (2)
  1. SODIUM SULFATE, POTASSIUM SULFATE AND MAGNESIUM SULFATE [Suspect]
     Active Substance: MAGNESIUM SULFATE, UNSPECIFIED\POTASSIUM SULFATE\SODIUM SULFATE
     Indication: Colonoscopy
     Dosage: OTHER QUANTITY : 2 OUNCE(S)?OTHER FREQUENCY : 10-12 HRS APART?
     Route: 048
     Dates: start: 20240623, end: 20240624
  2. Orho Novum 777 [Concomitant]

REACTIONS (2)
  - Nausea [None]
  - Haematemesis [None]

NARRATIVE: CASE EVENT DATE: 20240624
